FAERS Safety Report 24036530 (Version 1)
Quarter: 2024Q3

REPORT INFORMATION
  Report Type: Report from Study
  Country: US (occurrence: US)
  Receive Date: 20240701
  Receipt Date: 20240701
  Transmission Date: 20241017
  Serious: Yes (Death, Other)
  Sender: ABBVIE
  Company Number: US-ABBVIE-5820956

PATIENT
  Age: 84 Year
  Sex: Female
  Weight: 68 kg

DRUGS (1)
  1. RESTASIS [Suspect]
     Active Substance: CYCLOSPORINE
     Indication: Dry eye
     Dosage: UNKNOWN
     Route: 047
     Dates: start: 2022

REACTIONS (3)
  - Death [Fatal]
  - Myocardial infarction [Unknown]
  - Blood pressure decreased [Unknown]

NARRATIVE: CASE EVENT DATE: 20240613
